FAERS Safety Report 18736016 (Version 1)
Quarter: 2021Q1

REPORT INFORMATION
  Report Type: Spontaneous
  Country: US (occurrence: US)
  Receive Date: 20210113
  Receipt Date: 20210113
  Transmission Date: 20210419
  Serious: Yes (Other)
  Sender: FDA-Public Use
  Company Number: None

PATIENT
  Age: 46 Year
  Sex: Female
  Weight: 130.5 kg

DRUGS (6)
  1. GEODON [Concomitant]
     Active Substance: ZIPRASIDONE HYDROCHLORIDE\ZIPRASIDONE MESYLATE
  2. OCREVUS [Suspect]
     Active Substance: OCRELIZUMAB
     Indication: MULTIPLE SCLEROSIS
     Dosage: ?          QUANTITY:1 600;OTHER FREQUENCY:EVER 6 MONTHS;?
     Route: 042
     Dates: start: 20190719, end: 20200707
  3. REMERON [Concomitant]
     Active Substance: MIRTAZAPINE
  4. SYNTHROID [Concomitant]
     Active Substance: LEVOTHYROXINE SODIUM
  5. VITAMIN D [Concomitant]
     Active Substance: VITAMIN D NOS
  6. XANAX [Concomitant]
     Active Substance: ALPRAZOLAM

REACTIONS (2)
  - Gait disturbance [None]
  - Balance disorder [None]

NARRATIVE: CASE EVENT DATE: 20200401
